FAERS Safety Report 13873206 (Version 1)
Quarter: 2017Q3

REPORT INFORMATION
  Report Type: Report from Study
  Country: TH (occurrence: TH)
  Receive Date: 20170816
  Receipt Date: 20170816
  Transmission Date: 20171127
  Serious: Yes (Other)
  Sender: FDA-Public Use
  Company Number: TH-CIPLA LTD.-2017TH14087

PATIENT

DRUGS (1)
  1. TENOFOVIR/LAMIVUDINE/EFAVIRENZ [Suspect]
     Active Substance: EFAVIRENZ\LAMIVUDINE\TENOFOVIR
     Indication: HIV INFECTION
     Dosage: 300MG/300MG/600MG, QD
     Route: 065

REACTIONS (1)
  - Virologic failure [Unknown]
